FAERS Safety Report 9129707 (Version 4)
Quarter: 2013Q2

REPORT INFORMATION
  Report Type: Spontaneous
  Country: PL (occurrence: PL)
  Receive Date: 20130228
  Receipt Date: 20130417
  Transmission Date: 20140414
  Serious: Yes (Death, Hospitalization)
  Sender: FDA-Public Use
  Company Number: PL-SHIRE-ALL1-2013-01080

PATIENT
  Age: 13 Year
  Sex: Male
  Weight: 26 kg

DRUGS (1)
  1. ELAPRASE [Suspect]
     Indication: PRODUCT USED FOR UNKNOWN INDICATION
     Dosage: UNK, UNKNOWN
     Route: 041
     Dates: start: 201011, end: 20130131

REACTIONS (1)
  - Pneumonia [Fatal]
